FAERS Safety Report 15328971 (Version 1)
Quarter: 2018Q4

REPORT INFORMATION
  Report Type: Spontaneous
  Country: IT (occurrence: IT)
  Receive Date: 20180829
  Receipt Date: 20180829
  Transmission Date: 20190204
  Serious: Yes (Other)
  Sender: FDA-Public Use
  Company Number: IT-AXELLIA-001913

PATIENT
  Age: 58 Year
  Sex: Male

DRUGS (19)
  1. VANCOMYCIN [Suspect]
     Active Substance: VANCOMYCIN
     Indication: ANTIBIOTIC THERAPY
  2. FUROSEMIDE. [Concomitant]
     Active Substance: FUROSEMIDE
     Dosage: ACCORDING TO RENAL FUNCTION AND CARDIOCIRCULATORY COMPENSATION
  3. TRIMETON [Concomitant]
     Active Substance: CHLORPHENIRAMINE MALEATE
     Dosage: 10 MG, QD
  4. DARBEPOETIN ALFA [Concomitant]
     Active Substance: DARBEPOETIN ALFA
     Dosage: 4 MICROGRAM, TIW?DOSE 12 MICRO GM WEEKLY
  5. PROPRANOLOL [Concomitant]
     Active Substance: PROPRANOLOL HYDROCHLORIDE
     Dosage: 20 MG, BID?DOSE 40 MG
  6. KANRENOL [Concomitant]
     Active Substance: CANRENOATE POTASSIUM
     Dosage: ACCORDING TO RENAL FUNCTION AND CARDIOCIRCULATORY COMPENSATION
  7. MORPHINE [Concomitant]
     Active Substance: MORPHINE
     Dosage: INCREASING DOSE IN THE LAST FEW DAYS
  8. RABEPRAZOLE [Concomitant]
     Active Substance: RABEPRAZOLE
     Dosage: 20 MG, QD
  9. TERLIPRESSIN/TERLIPRESSIN ACETATE [Concomitant]
     Dosage: ACCORDING TO RENAL FUNCTION
  10. LINEZOLID. [Concomitant]
     Active Substance: LINEZOLID
     Indication: PNEUMONIA
     Dosage: 600 MG, BID?DOSE 1200 MG
     Dates: start: 2017, end: 2017
  11. OXYGEN. [Concomitant]
     Active Substance: OXYGEN
     Indication: PNEUMONIA
  12. ENTECAVIR. [Concomitant]
     Active Substance: ENTECAVIR
     Dosage: 0.5 MG, QD
  13. FOLIC ACID. [Concomitant]
     Active Substance: FOLIC ACID
     Dosage: 5 MG, QD
  14. TRAMADOL. [Concomitant]
     Active Substance: TRAMADOL
     Dosage: 50 MG, BID?DOSE 100 MG
  15. LACTULOSE. [Concomitant]
     Active Substance: LACTULOSE
     Dosage: SIX TABLESPOONS DAILY
     Route: 048
  16. CILASTATIN SODIUM/IMIPENEM [Suspect]
     Active Substance: CILASTATIN SODIUM\IMIPENEM
     Indication: ANTIBIOTIC THERAPY
     Dosage: 500 MG, TID
     Dates: start: 2017, end: 2017
  17. RIFAXIMIN. [Concomitant]
     Active Substance: RIFAXIMIN
     Dosage: 400 MG, TID?DOSE 1200 MG DAILY
  18. ALBUMIN HUMAN [Concomitant]
     Active Substance: ALBUMIN HUMAN
     Dosage: ACCORDING TO RENAL FUNCTION AND CARDIOCIRCULATORY COMPENSATION
  19. PIPERACILLIN SODIUM/TAZOBACTAM [Concomitant]
     Indication: PNEUMONIA
     Dosage: 2.25 MG FOUR TIMES A DAY
     Dates: start: 2017, end: 2017

REACTIONS (1)
  - Drug ineffective [Unknown]

NARRATIVE: CASE EVENT DATE: 2017
